FAERS Safety Report 14857595 (Version 1)
Quarter: 2018Q2

REPORT INFORMATION
  Report Type: Spontaneous
  Country: US (occurrence: US)
  Receive Date: 20180508
  Receipt Date: 20180508
  Transmission Date: 20180711
  Serious: No
  Sender: FDA-Public Use
  Company Number: US-RADIUS HEALTH INC.-2018US000579

PATIENT
  Sex: Female

DRUGS (5)
  1. TYMLOS [Suspect]
     Active Substance: ABALOPARATIDE
     Indication: OSTEOPOROSIS POSTMENOPAUSAL
     Dosage: 80 MCG, DAILY
     Route: 058
     Dates: start: 20180406
  2. PREDNISONE. [Concomitant]
     Active Substance: PREDNISONE
     Indication: PRODUCT USED FOR UNKNOWN INDICATION
  3. PERCOCET [Concomitant]
     Active Substance: ACETAMINOPHEN\OXYCODONE HYDROCHLORIDE
     Indication: PRODUCT USED FOR UNKNOWN INDICATION
  4. RASUVO [Concomitant]
     Active Substance: METHOTREXATE SODIUM
     Indication: PRODUCT USED FOR UNKNOWN INDICATION
  5. ACTEMRA [Concomitant]
     Active Substance: TOCILIZUMAB
     Indication: PRODUCT USED FOR UNKNOWN INDICATION

REACTIONS (3)
  - Product use complaint [Unknown]
  - Spinal pain [Not Recovered/Not Resolved]
  - Needle issue [Unknown]
